FAERS Safety Report 25362926 (Version 1)
Quarter: 2025Q2

REPORT INFORMATION
  Report Type: Report from Study
  Country: US (occurrence: US)
  Receive Date: 20250527
  Receipt Date: 20250527
  Transmission Date: 20250717
  Serious: Yes (Other)
  Sender: OTSUKA
  Company Number: US-MMM-Otsuka-LD9EAOQU

PATIENT
  Sex: Female

DRUGS (1)
  1. TOLVAPTAN [Suspect]
     Active Substance: TOLVAPTAN
     Indication: Congenital cystic kidney disease
     Route: 065
     Dates: start: 20210429, end: 202504

REACTIONS (8)
  - Craniofacial fracture [Unknown]
  - Fall [Recovering/Resolving]
  - Shoulder fracture [Unknown]
  - Hand fracture [Unknown]
  - Haematoma [Unknown]
  - Neuralgia [Unknown]
  - Multiple injuries [Unknown]
  - Monoplegia [Unknown]

NARRATIVE: CASE EVENT DATE: 20250401
